FAERS Safety Report 16713218 (Version 1)
Quarter: 2019Q3

REPORT INFORMATION
  Report Type: Spontaneous
  Country: US (occurrence: US)
  Receive Date: 20190817
  Receipt Date: 20190817
  Transmission Date: 20191004
  Serious: No
  Sender: FDA-Public Use
  Company Number: US-JNJFOC-20190812926

PATIENT
  Sex: Female

DRUGS (1)
  1. TYLENOL [Suspect]
     Active Substance: ACETAMINOPHEN
     Indication: ANALGESIC THERAPY
     Dosage: ONE PILL ONCE
     Route: 048

REACTIONS (3)
  - Incorrect dose administered [Recovered/Resolved]
  - Hypertension [Recovered/Resolved]
  - Tinnitus [Recovered/Resolved]
